FAERS Safety Report 12913792 (Version 1)
Quarter: 2016Q4

REPORT INFORMATION
  Report Type: Spontaneous
  Country: US (occurrence: US)
  Receive Date: 20161106
  Receipt Date: 20161106
  Transmission Date: 20170207
  Serious: No
  Sender: FDA-Public Use
  Company Number: US-RELYPSA-RLY2016001031

PATIENT
  Sex: Male

DRUGS (11)
  1. DUTASTERIDE. [Concomitant]
     Active Substance: DUTASTERIDE
  2. SIMVASTATIN. [Concomitant]
     Active Substance: SIMVASTATIN
  3. GLIMEPIRIDE. [Concomitant]
     Active Substance: GLIMEPIRIDE
  4. VELTASSA [Suspect]
     Active Substance: PATIROMER
     Indication: HYPERKALAEMIA
     Dosage: 8.4 MG, UNKNOWN
     Route: 065
  5. METOPROLOL SUCCINATE. [Concomitant]
     Active Substance: METOPROLOL SUCCINATE
  6. OMEPRAZOLE. [Concomitant]
     Active Substance: OMEPRAZOLE
  7. JANUMET [Concomitant]
     Active Substance: METFORMIN HYDROCHLORIDE\SITAGLIPTIN PHOSPHATE
  8. REPAGLINIDE. [Concomitant]
     Active Substance: REPAGLINIDE
  9. VITAMIN D3 [Concomitant]
     Active Substance: CHOLECALCIFEROL
  10. ASPIRIN 81 [Concomitant]
     Active Substance: ASPIRIN
  11. XARELTO [Concomitant]
     Active Substance: RIVAROXABAN

REACTIONS (2)
  - No adverse event [Unknown]
  - Drug dose omission [Unknown]
